FAERS Safety Report 12867295 (Version 2)
Quarter: 2016Q4

REPORT INFORMATION
  Report Type: Report from Study
  Country: None (occurrence: TW)
  Receive Date: 20161020
  Receipt Date: 20161109
  Transmission Date: 20170207
  Serious: Yes (Hospitalization, Other)
  Sender: FDA-Public Use
  Company Number: TW-ABBVIE-16K-153-1755766-00

PATIENT
  Age: 63 Year
  Sex: Male
  Weight: 70 kg

DRUGS (1)
  1. HUMIRA [Suspect]
     Active Substance: ADALIMUMAB
     Indication: CROHN^S DISEASE
     Route: 058
     Dates: start: 20151123, end: 20160919

REACTIONS (15)
  - Blood urea increased [Recovered/Resolved]
  - Platelet count decreased [Not Recovered/Not Resolved]
  - Atrial fibrillation [Recovered/Resolved]
  - Cardiac failure congestive [Not Recovered/Not Resolved]
  - Dyslipidaemia [Unknown]
  - Aortic valve incompetence [Recovered/Resolved]
  - Lymphocytic infiltration [Recovered/Resolved]
  - Ischaemia [Recovered/Resolved]
  - Blood sodium increased [Recovered/Resolved]
  - Lung infiltration [Recovered/Resolved]
  - Scoliosis [Not Recovered/Not Resolved]
  - Aortic valve calcification [Recovered/Resolved]
  - Cardiac myxoma [Not Recovered/Not Resolved]
  - Cardiomegaly [Recovered/Resolved]
  - Cardiomyopathy [Recovered/Resolved]

NARRATIVE: CASE EVENT DATE: 2016
